FAERS Safety Report 9545426 (Version 2)
Quarter: 2013Q3

REPORT INFORMATION
  Report Type: Report from Study
  Country: US (occurrence: US)
  Receive Date: 20130923
  Receipt Date: 20130923
  Transmission Date: 20140515
  Serious: Yes (Hospitalization, Other)
  Sender: FDA-Public Use
  Company Number: US-US-EMD SERONO, INC.-7228847

PATIENT
  Age: 62 Year
  Sex: Male

DRUGS (2)
  1. REBIF [Suspect]
     Indication: MULTIPLE SCLEROSIS
     Route: 058
     Dates: start: 20130506, end: 201307
  2. REBIF [Suspect]
     Route: 058
     Dates: start: 201307

REACTIONS (11)
  - Disease progression [Not Recovered/Not Resolved]
  - Fall [Not Recovered/Not Resolved]
  - Cerebral atrophy [Unknown]
  - Oedema [Recovering/Resolving]
  - Skin ulcer [Unknown]
  - Body tinea [Not Recovered/Not Resolved]
  - Cognitive disorder [Not Recovered/Not Resolved]
  - Skin discolouration [Not Recovered/Not Resolved]
  - Injection site vesicles [Not Recovered/Not Resolved]
  - Back injury [Unknown]
  - Injection site erythema [Not Recovered/Not Resolved]
